FAERS Safety Report 14157100 (Version 1)
Quarter: 2017Q4

REPORT INFORMATION
  Report Type: Spontaneous
  Country: BR (occurrence: BR)
  Receive Date: 20171103
  Receipt Date: 20171103
  Transmission Date: 20180321
  Serious: Yes (Other)
  Sender: FDA-Public Use
  Company Number: BR-PFIZER INC-2017472773

PATIENT
  Age: 86 Year
  Sex: Female

DRUGS (5)
  1. ANCORON [Concomitant]
     Active Substance: AMIODARONE HYDROCHLORIDE
     Dosage: UNK, 1X/DAY
     Dates: start: 2015
  2. CALTREN [Concomitant]
     Active Substance: NITRENDIPINE
     Dosage: UNK, 1X/DAY
     Dates: start: 2015
  3. LIPITOR [Suspect]
     Active Substance: ATORVASTATIN CALCIUM
     Dosage: 10 MG, 1X/DAY (ONE TABLET IN THE MORNING)
     Dates: start: 2015
  4. RENITEC /00574902/ [Concomitant]
     Active Substance: ENALAPRIL MALEATE
     Dosage: UNK, 1X/DAY
     Dates: start: 2015
  5. CITTA [Concomitant]
     Active Substance: CITALOPRAM HYDROBROMIDE
     Dosage: UNK, 1X/DAY
     Dates: start: 2015

REACTIONS (3)
  - Humerus fracture [Recovering/Resolving]
  - Accident [Recovering/Resolving]
  - Femur fracture [Recovering/Resolving]

NARRATIVE: CASE EVENT DATE: 201709
